FAERS Safety Report 19101193 (Version 1)
Quarter: 2021Q2

REPORT INFORMATION
  Report Type: Report from Study
  Country: None (occurrence: US)
  Receive Date: 20210407
  Receipt Date: 20210407
  Transmission Date: 20210717
  Serious: Yes (Hospitalization, Other)
  Sender: FDA-Public Use
  Company Number: US-ABBVIE-21K-163-3841452-00

PATIENT
  Sex: Male

DRUGS (1)
  1. HUMIRA [Suspect]
     Active Substance: ADALIMUMAB
     Indication: RHEUMATOID ARTHRITIS
     Dosage: CITRATE FREE
     Route: 058

REACTIONS (6)
  - Feeling abnormal [Unknown]
  - Illness [Recovering/Resolving]
  - Pancreatectomy [Recovering/Resolving]
  - Bile duct reconstruction [Recovering/Resolving]
  - Pyrexia [Recovering/Resolving]
  - Splenectomy [Recovering/Resolving]
